FAERS Safety Report 9552868 (Version 1)
Quarter: 2013Q3

REPORT INFORMATION
  Report Type: Spontaneous
  Country: US (occurrence: None)
  Receive Date: 20130917
  Receipt Date: 20130917
  Transmission Date: 20140515
  Serious: Yes (Other)
  Sender: FDA-Public Use
  Company Number: 2013037978

PATIENT
  Sex: Female

DRUGS (1)
  1. HIZENTRA [Suspect]

REACTIONS (3)
  - Pneumonia [None]
  - Urinary tract infection [None]
  - Fungal infection [None]
